FAERS Safety Report 4851782-6 (Version None)
Quarter: 2005Q4

REPORT INFORMATION
  Report Type: 
  Country: None (occurrence: None)
  Receive Date: 20051209
  Receipt Date: 20051209
  Transmission Date: 20060501
  Serious: Yes (Other)
  Sender: FDA-Public Use
  Company Number: None

PATIENT
  Sex: Male
  Weight: 64 kg

DRUGS (1)
  1. OXYCODONE AND ACETAMINOPHEN [Suspect]
     Indication: PAIN
     Dosage: 1-2 TABLETS Q 8 PRN
     Dates: start: 20050714, end: 20050721

REACTIONS (4)
  - LACRIMATION INCREASED [None]
  - PRURITUS [None]
  - RASH [None]
  - SWELLING FACE [None]
